FAERS Safety Report 8433677-4 (Version None)
Quarter: 2012Q2

REPORT INFORMATION
  Report Type: 
  Country: None (occurrence: None)
  Receive Date: 20120613
  Receipt Date: 20120531
  Transmission Date: 20120825
  Serious: No
  Sender: FDA-Public Use
  Company Number: US-ASTRAZENECA-2012SE36527

PATIENT
  Age: 38 Year
  Sex: Female
  Weight: 68 kg

DRUGS (5)
  1. PULMICORT FLEXHALER [Suspect]
     Indication: ASTHMA
     Route: 055
  2. FLUCONAXOLE [Concomitant]
  3. VYTORIN [Concomitant]
  4. SINGULAIR [Concomitant]
  5. FORADIL [Concomitant]

REACTIONS (3)
  - DRUG DOSE OMISSION [None]
  - ASTHMA [None]
  - OFF LABEL USE [None]
